FAERS Safety Report 7211089-9 (Version None)
Quarter: 2011Q1

REPORT INFORMATION
  Report Type: 
  Country: None (occurrence: None)
  Receive Date: 20110105
  Receipt Date: 20101229
  Transmission Date: 20110831
  Serious: Yes (Death)
  Sender: FDA-Public Use
  Company Number: MX-SANOFI-AVENTIS-2011SA000002

PATIENT
  Age: 85 Year
  Sex: Female

DRUGS (4)
  1. LANTUS [Suspect]
     Indication: TYPE 2 DIABETES MELLITUS
     Route: 058
     Dates: start: 20060101, end: 20100101
  2. LOSARTAN [Concomitant]
     Route: 048
     Dates: end: 20100101
  3. ALL OTHER THERAPEUTIC PRODUCTS [Concomitant]
     Route: 048
     Dates: end: 20100101
  4. GLIMEPIRIDE [Concomitant]
     Indication: TYPE 2 DIABETES MELLITUS
     Route: 048
     Dates: start: 20060101, end: 20100101

REACTIONS (4)
  - HYPOGLYCAEMIA [None]
  - RENAL FAILURE CHRONIC [None]
  - HYPERGLYCAEMIA [None]
  - PNEUMONIA [None]
